FAERS Safety Report 13358222 (Version 1)
Quarter: 2017Q1

REPORT INFORMATION
  Report Type: Spontaneous
  Country: GB (occurrence: GB)
  Receive Date: 20170322
  Receipt Date: 20170322
  Transmission Date: 20170429
  Serious: Yes (Other)
  Sender: FDA-Public Use
  Company Number: GB-AUROBINDO-AUR-APL-2017-31046

PATIENT
  Age: 27 Year
  Sex: Female
  Weight: 61.68 kg

DRUGS (1)
  1. SUMATRIPTAN TABLETS 50 MG [Suspect]
     Active Substance: SUMATRIPTAN SUCCINATE
     Indication: BASILAR MIGRAINE
     Dosage: 50 MG, UNK
     Route: 048

REACTIONS (1)
  - Eye pain [Recovered/Resolved]
